FAERS Safety Report 25994756 (Version 2)
Quarter: 2025Q4

REPORT INFORMATION
  Report Type: Spontaneous
  Country: US (occurrence: US)
  Receive Date: 20251104
  Receipt Date: 20251226
  Transmission Date: 20260117
  Serious: No
  Sender: MERCK SHARP & DOHME LLC
  Company Number: US-009507513-2345864

PATIENT
  Sex: Female
  Weight: 104.3 kg

DRUGS (27)
  1. WINREVAIR [Suspect]
     Active Substance: SOTATERCEPT-CSRK
     Indication: Product used for unknown indication
  2. WINREVAIR [Suspect]
     Active Substance: SOTATERCEPT-CSRK
  3. WINREVAIR [Suspect]
     Active Substance: SOTATERCEPT-CSRK
  4. WINREVAIR [Suspect]
     Active Substance: SOTATERCEPT-CSRK
  5. TYVASO DPI [Suspect]
     Active Substance: TREPROSTINIL
     Indication: Pulmonary arterial hypertension
     Route: 055
  6. TYVASO DPI [Suspect]
     Active Substance: TREPROSTINIL
     Indication: Pulmonary arterial hypertension
     Route: 055
     Dates: start: 20230403
  7. Flonase sensimist allergy relief (Fluticasone Furoate) [Concomitant]
  8. METFORMIN HYDROCHLORIDE [Concomitant]
     Active Substance: METFORMIN HYDROCHLORIDE
  9. CRESTOR [Concomitant]
     Active Substance: ROSUVASTATIN CALCIUM
  10. VENLAFAXINE HCL [Concomitant]
     Active Substance: VENLAFAXINE HYDROCHLORIDE
  11. Naphcon-a (Naphazoline hydrochloride, Pheniramine maleate) [Concomitant]
  12. POTASSIUM CHLORIDE [Concomitant]
     Active Substance: POTASSIUM CHLORIDE
  13. OPSUMIT [Concomitant]
     Active Substance: MACITENTAN
  14. ALBUTEROL SULFATE [Concomitant]
     Active Substance: ALBUTEROL SULFATE
  15. LORAZEPAM [Concomitant]
     Active Substance: LORAZEPAM
  16. SILDENAFIL CITRATE [Concomitant]
     Active Substance: SILDENAFIL CITRATE
  17. ALLOPURINOL [Concomitant]
     Active Substance: ALLOPURINOL
  18. VITAMIN B12 [Concomitant]
     Active Substance: CYANOCOBALAMIN
  19. ASPIRIN [Concomitant]
     Active Substance: ASPIRIN
  20. OXYGEN [Concomitant]
     Active Substance: OXYGEN
  21. VITAMIN D3 [Concomitant]
     Active Substance: CHOLECALCIFEROL
  22. BUMETANIDE [Concomitant]
     Active Substance: BUMETANIDE
  23. MAGNESIUM [Concomitant]
     Active Substance: MAGNESIUM
  24. Qvar redihaler (Beclometasone dipropionate) [Concomitant]
  25. FERROUS SULFATE [Concomitant]
     Active Substance: FERROUS SULFATE
  26. VITAMIN B12 [Concomitant]
     Active Substance: CYANOCOBALAMIN
  27. VITAMIN C [Concomitant]
     Active Substance: ASCORBIC ACID

REACTIONS (2)
  - Injection site pain [Unknown]
  - Product dose omission issue [Unknown]
